FAERS Safety Report 7727201-9 (Version None)
Quarter: 2011Q3

REPORT INFORMATION
  Report Type: 
  Country: None (occurrence: None)
  Receive Date: 20110902
  Receipt Date: 20110823
  Transmission Date: 20111222
  Serious: Yes (Death, Other)
  Sender: FDA-Public Use
  Company Number: US-BAYER-2011-069288

PATIENT
  Sex: Male
  Weight: 61 kg

DRUGS (10)
  1. RENAGEL [Concomitant]
  2. GADOLINIUM IN UNSPECIFIED DRUG [Suspect]
     Indication: NUCLEAR MAGNETIC RESONANCE IMAGING
     Dosage: UNK
     Dates: start: 20060301, end: 20080301
  3. LOSARTAN [Concomitant]
  4. DIOVAN [Concomitant]
  5. MAGNEVIST [Suspect]
     Indication: NUCLEAR MAGNETIC RESONANCE IMAGING
     Dosage: UNK UNK, ONCE
     Dates: start: 20060326, end: 20060326
  6. GADOLINIUM IN UNSPECIFIED DRUG [Suspect]
     Dosage: UNK
     Dates: start: 20060130, end: 20060130
  7. GADOLINIUM IN UNSPECIFIED DRUG [Suspect]
     Dosage: UNK
     Dates: start: 20060329, end: 20060329
  8. EPOGEN [Concomitant]
  9. HECTOROL [Concomitant]
  10. METOPROLOL [Concomitant]

REACTIONS (9)
  - DEFORMITY [None]
  - EMOTIONAL DISTRESS [None]
  - ANXIETY [None]
  - PAIN [None]
  - SCAR [None]
  - INJURY [None]
  - NEPHROGENIC SYSTEMIC FIBROSIS [None]
  - PRURITUS GENERALISED [None]
  - ANHEDONIA [None]
